FAERS Safety Report 25776052 (Version 1)
Quarter: 2025Q3

REPORT INFORMATION
  Report Type: Spontaneous
  Country: US (occurrence: US)
  Receive Date: 20250909
  Receipt Date: 20250909
  Transmission Date: 20251021
  Serious: No
  Sender: GRIFOLS
  Company Number: US-IGSA-BIG0037755

PATIENT
  Age: 58 Year
  Sex: Male
  Weight: 85.805 kg

DRUGS (3)
  1. GAMUNEX-C [Suspect]
     Active Substance: HUMAN IMMUNOGLOBULIN G
     Indication: Chronic inflammatory demyelinating polyradiculoneuropathy
     Dosage: 85 GRAM, Q.2WK.
     Route: 042
     Dates: start: 20250829, end: 20250829
  2. GAMUNEX-C [Suspect]
     Active Substance: HUMAN IMMUNOGLOBULIN G
     Dosage: 85 GRAM, Q.2WK.
     Route: 042
     Dates: start: 20250829, end: 20250829
  3. FINASTERIDE [Concomitant]
     Active Substance: FINASTERIDE
     Route: 048

REACTIONS (3)
  - Pruritus [Unknown]
  - Urticaria [Unknown]
  - Lip swelling [Unknown]

NARRATIVE: CASE EVENT DATE: 20250829
